FAERS Safety Report 4848360-1 (Version None)
Quarter: 2005Q4

REPORT INFORMATION
  Report Type: 
  Country: None (occurrence: None)
  Receive Date: 20051207
  Receipt Date: 20051207
  Transmission Date: 20060501
  Serious: Yes (Other)
  Sender: FDA-Public Use
  Company Number: None

PATIENT
  Age: 51 Year
  Sex: Female
  Weight: 62 kg

DRUGS (2)
  1. AVASTIN [Suspect]
     Indication: COLON CANCER METASTATIC
     Dosage: 5MG/KG ~ MONTHLY X 5 IV
     Route: 042
  2. AVASTIN [Suspect]
     Indication: METASTASES TO LIVER
     Dosage: 5MG/KG ~ MONTHLY X 5 IV
     Route: 042

REACTIONS (5)
  - ARTERIAL THROMBOSIS [None]
  - GASTROINTESTINAL DISORDER [None]
  - GASTROINTESTINAL NECROSIS [None]
  - INTESTINAL ISCHAEMIA [None]
  - SMALL INTESTINAL OBSTRUCTION [None]
